FAERS Safety Report 15996941 (Version 1)
Quarter: 2019Q1

REPORT INFORMATION
  Report Type: Spontaneous
  Country: CN (occurrence: CN)
  Receive Date: 20190222
  Receipt Date: 20190222
  Transmission Date: 20190418
  Serious: Yes (Hospitalization)
  Sender: FDA-Public Use
  Company Number: CN-JNJFOC-20190219082

PATIENT
  Age: 1 Year
  Sex: Male

DRUGS (2)
  1. REMICADE [Suspect]
     Active Substance: INFLIXIMAB
     Indication: CORONARY ARTERY ANEURYSM
     Route: 042
     Dates: start: 20190122
  2. REMICADE [Suspect]
     Active Substance: INFLIXIMAB
     Indication: KAWASAKI^S DISEASE
     Route: 042
     Dates: start: 20190122

REACTIONS (5)
  - Off label use [Unknown]
  - Infusion related reaction [Recovering/Resolving]
  - Product use in unapproved indication [Unknown]
  - Bradycardia [Recovering/Resolving]
  - Blood pressure decreased [Recovering/Resolving]

NARRATIVE: CASE EVENT DATE: 20190122
